FAERS Safety Report 15157715 (Version 9)
Quarter: 2021Q1

REPORT INFORMATION
  Report Type: Spontaneous
  Country: US (occurrence: US)
  Receive Date: 20180718
  Receipt Date: 20210212
  Transmission Date: 20210419
  Serious: Yes (Other)
  Sender: FDA-Public Use
  Company Number: US-PFIZER INC-2016458599

PATIENT
  Age: 69 Year
  Sex: Female
  Weight: 87 kg

DRUGS (18)
  1. LYRICA [Suspect]
     Active Substance: PREGABALIN
     Dosage: 300 MG, 2X/DAY
     Route: 048
  2. LYRICA [Suspect]
     Active Substance: PREGABALIN
     Dosage: 150 MG, 2X/DAY
     Route: 048
     Dates: start: 20160929
  3. LIPITOR [Concomitant]
     Active Substance: ATORVASTATIN CALCIUM
     Dosage: 20 MG, DAILY
     Route: 048
     Dates: start: 20150928
  4. LYRICA [Suspect]
     Active Substance: PREGABALIN
     Indication: FIBROMYALGIA
     Dosage: 150 MG, 3X/DAY
     Route: 048
     Dates: start: 20160915
  5. LYRICA [Suspect]
     Active Substance: PREGABALIN
     Dosage: 150 MG, 2X/DAY
     Route: 048
  6. LYRICA [Suspect]
     Active Substance: PREGABALIN
     Dosage: 150 MG, 2X/DAY
     Route: 048
  7. ELAVIL [Concomitant]
     Active Substance: AMITRIPTYLINE HYDROCHLORIDE
     Dosage: 0.5 DF, 1X/DAY ((TAKE 0.5 TABLETS BY MOUTH NIGHTLY))
     Route: 048
     Dates: start: 20160915
  8. FERROUS SULFATE. [Concomitant]
     Active Substance: FERROUS SULFATE
     Dosage: 325 MG, DAILY
     Route: 048
     Dates: start: 20160920
  9. ANTIVERT [Concomitant]
     Active Substance: MECLIZINE HYDROCHLORIDE
     Indication: MOTION SICKNESS
     Dosage: 12.5 MG
     Route: 048
     Dates: start: 20151124
  10. PRILOSEC [Concomitant]
     Active Substance: OMEPRAZOLE MAGNESIUM
     Dosage: 20 MG, 2X/DAY
     Route: 048
     Dates: start: 20151021
  11. CELEXA [Concomitant]
     Active Substance: CITALOPRAM HYDROBROMIDE
     Dosage: 40 MG, DAILY
     Route: 048
     Dates: start: 20151022
  12. TOPROL XL [Concomitant]
     Active Substance: METOPROLOL SUCCINATE
     Dosage: 25 MG, DAILY
     Route: 048
     Dates: start: 20160915
  13. ULTRAM [Concomitant]
     Active Substance: TRAMADOL HYDROCHLORIDE
     Indication: PAIN
     Dosage: UNK UNK, AS NEEDED (TAKE 1?2 TABLETS BY MOUTH EVERY 8 HOURS AS NEEDED)
     Route: 048
     Dates: start: 20150925
  14. LYRICA [Suspect]
     Active Substance: PREGABALIN
     Dosage: 75 MG
  15. ELIQUIS [Concomitant]
     Active Substance: APIXABAN
     Dosage: 5 MG, 2X/DAY
     Route: 048
     Dates: start: 20160915
  16. LYRICA [Suspect]
     Active Substance: PREGABALIN
     Dosage: UNK, ALTERNATE DAY (TOOK LYRICA EVERY OTHER DAY)
  17. LYRICA [Suspect]
     Active Substance: PREGABALIN
     Dosage: 4 DF, DAILY[SHE NORMALLY TAKES 4 PILLS PER DAY]
  18. LYRICA [Suspect]
     Active Substance: PREGABALIN
     Dosage: UNK, DAILY (SHE CUTS BACK TO 3 PILLS PER DAY OR EVEN 2 PILLS PER DAY)

REACTIONS (13)
  - Intentional product use issue [Unknown]
  - Thinking abnormal [Unknown]
  - Drug ineffective [Unknown]
  - Confusional state [Unknown]
  - Headache [Not Recovered/Not Resolved]
  - Gastrooesophageal reflux disease [Unknown]
  - Withdrawal syndrome [Not Recovered/Not Resolved]
  - Insomnia [Not Recovered/Not Resolved]
  - Hot flush [Not Recovered/Not Resolved]
  - Musculoskeletal disorder [Unknown]
  - Atrial fibrillation [Unknown]
  - Dizziness [Not Recovered/Not Resolved]
  - Crying [Unknown]
